FAERS Safety Report 7771049-6 (Version None)
Quarter: 2011Q3

REPORT INFORMATION
  Report Type: 
  Country: None (occurrence: None)
  Receive Date: 20110922
  Receipt Date: 20110407
  Transmission Date: 20111222
  Serious: Yes (Hospitalization)
  Sender: FDA-Public Use
  Company Number: US-ASTRAZENECA-2011SE19949

PATIENT
  Age: 52 Year
  Sex: Male
  Weight: 90.7 kg

DRUGS (7)
  1. DALMANE [Concomitant]
  2. SEROQUEL [Suspect]
     Indication: INSOMNIA
     Route: 048
     Dates: start: 20050101, end: 20110101
  3. ATIVAN [Concomitant]
  4. SEROQUEL [Suspect]
     Indication: POST-TRAUMATIC STRESS DISORDER
     Route: 048
     Dates: start: 20050101, end: 20110101
  5. ALCOHOL [Suspect]
     Route: 065
  6. TRAZODONE HCL [Concomitant]
  7. TRAMADOL HCL [Concomitant]

REACTIONS (7)
  - BACK PAIN [None]
  - OFF LABEL USE [None]
  - URINE ODOUR ABNORMAL [None]
  - INSOMNIA [None]
  - ASTHENIA [None]
  - DRUG DOSE OMISSION [None]
  - HYPERHIDROSIS [None]
